FAERS Safety Report 19866464 (Version 1)
Quarter: 2021Q3

REPORT INFORMATION
  Report Type: Other
  Country: IT (occurrence: IT)
  Receive Date: 20210922
  Receipt Date: 20210922
  Transmission Date: 20211014
  Serious: Yes (Hospitalization)
  Sender: FDA-Public Use
  Company Number: IT-CELLTRION INC.-2021IT004625

PATIENT

DRUGS (3)
  1. UROMITEXAN [Suspect]
     Active Substance: MESNA
     Indication: HIGH GRADE B-CELL LYMPHOMA BURKITT-LIKE LYMPHOMA
     Dosage: 1200 MG, 1 CYCLE
     Route: 042
     Dates: start: 20200904, end: 20201023
  2. TRUXIMA [Suspect]
     Active Substance: RITUXIMAB-ABBS
     Indication: HIGH GRADE B-CELL LYMPHOMA BURKITT-LIKE LYMPHOMA
     Dosage: 700 MG, 1 CYCLE
     Route: 042
     Dates: start: 20200911, end: 20201023
  3. ENDOXAN [CYCLOPHOSPHAMIDE] [Suspect]
     Active Substance: CYCLOPHOSPHAMIDE
     Indication: HIGH GRADE B-CELL LYMPHOMA BURKITT-LIKE LYMPHOMA
     Dosage: 580 MG, 1 CYCLE
     Route: 042
     Dates: start: 20200904, end: 20201023

REACTIONS (2)
  - Off label use [Unknown]
  - Anaemia [Recovering/Resolving]

NARRATIVE: CASE EVENT DATE: 20201104
